FAERS Safety Report 15309822 (Version 11)
Quarter: 2020Q3

REPORT INFORMATION
  Report Type: Report from Study
  Country: IE (occurrence: IE)
  Receive Date: 20180823
  Receipt Date: 20181129
  Transmission Date: 20201104
  Serious: Yes (Hospitalization)
  Sender: FDA-Public Use
  Company Number: IE-ROCHE-2169210

PATIENT
  Age: 39 Year
  Sex: Male
  Weight: 69.9 kg

DRUGS (13)
  1. OBINUTUZUMAB. [Suspect]
     Active Substance: OBINUTUZUMAB
     Indication: CHRONIC LYMPHOCYTIC LEUKAEMIA
     Dosage: CYCLE 3?DATE OF LAST DOSE PRIOR TO SAE ONSET 08/AUG/2018 (1000 MG)?MOST RECENT DOSE PRIOR TO HYPOPHO
     Route: 042
     Dates: start: 20180613
  2. IBRUTINIB [Suspect]
     Active Substance: IBRUTINIB
     Indication: CHRONIC LYMPHOCYTIC LEUKAEMIA
     Dosage: CYCLE 3?DATE OF LAST DOSE PRIOR TO SAE ONSET 08/AUG/2018 (420 MG)?MOST RECENT DOSE PRIOR TO HYPOPHOS
     Route: 048
     Dates: start: 20180613
  3. VALACICLOVIR [Concomitant]
     Active Substance: VALACYCLOVIR HYDROCHLORIDE
     Route: 048
     Dates: start: 20180704
  4. RANITIDINE. [Concomitant]
     Active Substance: RANITIDINE
     Route: 042
     Dates: start: 20180713, end: 20180808
  5. BISOPROLOL [Concomitant]
     Active Substance: BISOPROLOL
     Route: 048
     Dates: start: 20181010
  6. ALLOPURINOL. [Concomitant]
     Active Substance: ALLOPURINOL
     Route: 048
     Dates: start: 20180615
  7. GALFER [Concomitant]
     Active Substance: IRON
     Route: 048
     Dates: start: 20180808
  8. PIRITON [Concomitant]
     Active Substance: CHLORPHENIRAMINE MALEATE
     Dosage: ONGOING
     Route: 042
     Dates: start: 20180613, end: 20180808
  9. VENETOCLAX. [Suspect]
     Active Substance: VENETOCLAX
     Indication: CHRONIC LYMPHOCYTIC LEUKAEMIA
     Dosage: CYCLE 3?DATE OF LAST DOSE PRIOR TO SAE ONSET 08/AUG/2018 (400 MG)?MOST RECENT DOSE PRIOR TO HYPOPHOS
     Route: 048
     Dates: start: 20180704
  10. IMODIUM [Concomitant]
     Active Substance: LOPERAMIDE HYDROCHLORIDE
     Route: 048
     Dates: start: 20180808
  11. PARACETAMOL [Concomitant]
     Active Substance: ACETAMINOPHEN
     Route: 065
     Dates: start: 20180613, end: 20180808
  12. BISOPROLOL [Concomitant]
     Active Substance: BISOPROLOL
     Route: 048
     Dates: start: 20180813
  13. METHYLPREDNISOLONE. [Concomitant]
     Active Substance: METHYLPREDNISOLONE
     Route: 042
     Dates: start: 20180618, end: 20180808

REACTIONS (2)
  - Supraventricular tachycardia [Recovered/Resolved]
  - Hypophosphataemia [Recovered/Resolved]

NARRATIVE: CASE EVENT DATE: 20180809
